FAERS Safety Report 4433940-8 (Version None)
Quarter: 2004Q3

REPORT INFORMATION
  Report Type: 
  Country: None (occurrence: None)
  Receive Date: 20040825
  Receipt Date: 20040811
  Transmission Date: 20050211
  Serious: Yes (Hospitalization, Other)
  Sender: FDA-Public Use
  Company Number: USA040875273

PATIENT
  Age: 7 Year
  Sex: Female
  Weight: 19 kg

DRUGS (2)
  1. STRATTERA [Suspect]
     Indication: ATTENTION DEFICIT/HYPERACTIVITY DISORDER
     Dosage: 25 MG/1 DAY
     Dates: start: 20040715, end: 20040807
  2. IBUPROFEN [Concomitant]

REACTIONS (7)
  - ANURIA [None]
  - COUGH [None]
  - HEPATITIS [None]
  - LETHARGY [None]
  - PYREXIA [None]
  - VOMITING [None]
  - WHEEZING [None]
